FAERS Safety Report 9342555 (Version 2)
Quarter: 2013Q2

REPORT INFORMATION
  Report Type: Spontaneous
  Country: US (occurrence: US)
  Receive Date: 20130611
  Receipt Date: 20130614
  Transmission Date: 20140414
  Serious: Yes (Death)
  Sender: FDA-Public Use
  Company Number: US-PFIZER INC-2013173812

PATIENT
  Age: 64 Year
  Sex: Male

DRUGS (1)
  1. MORPHINE SULFATE [Suspect]
     Dosage: 1.2 G, SINGLE
     Route: 048

REACTIONS (3)
  - Suicide attempt [Fatal]
  - Intentional overdose [Fatal]
  - Cardiac arrest [Fatal]
